FAERS Safety Report 10174602 (Version 1)
Quarter: 2014Q2

REPORT INFORMATION
  Report Type: Spontaneous
  Country: US (occurrence: None)
  Receive Date: 20140416
  Receipt Date: 20140416
  Transmission Date: 20141212
  Serious: Yes (Other)
  Sender: FDA-Public Use
  Company Number: 163-POMAL-13113283

PATIENT
  Age: 64 Year
  Sex: Male
  Weight: 102.42 kg

DRUGS (4)
  1. POMALYST [Suspect]
     Indication: PLASMA CELL MYELOMA
     Route: 048
     Dates: start: 20130617, end: 20131105
  2. COLESTID (COLESTIPOL HYDROCHLORIDE) [Concomitant]
  3. ASA (ACETYLSALICYLIC ACID) [Concomitant]
  4. LEXAPRO (ESCITALOPRAM OXALATE) [Concomitant]

REACTIONS (1)
  - Neutropenia [None]
